FAERS Safety Report 15847188 (Version 4)
Quarter: 2019Q4

REPORT INFORMATION
  Report Type: Spontaneous
  Country: US (occurrence: US)
  Receive Date: 20190121
  Receipt Date: 20191114
  Transmission Date: 20200122
  Serious: Yes (Hospitalization, Other)
  Sender: FDA-Public Use
  Company Number: US-AMGEN-USASP2019007985

PATIENT
  Age: 41 Year
  Sex: Female

DRUGS (10)
  1. ALBENDAZOLE. [Concomitant]
     Active Substance: ALBENDAZOLE
     Dosage: UNK
     Dates: start: 20130228, end: 20130801
  2. ALBENDAZOLE. [Concomitant]
     Active Substance: ALBENDAZOLE
     Dosage: UNK
     Dates: start: 20160328
  3. PRAZIQUANTEL. [Concomitant]
     Active Substance: PRAZIQUANTEL
     Dosage: UNK
     Dates: start: 2013
  4. PRAZIQUANTEL. [Concomitant]
     Active Substance: PRAZIQUANTEL
     Dosage: UNK
     Dates: start: 20160328
  5. METHOTREXATE. [Concomitant]
     Active Substance: METHOTREXATE
     Dosage: 20 MILLIGRAM, QWK
     Dates: end: 20140801
  6. ETANERCEPT [Suspect]
     Active Substance: ETANERCEPT
     Indication: INFLAMMATION
     Dosage: 25 MILLIGRAM, QWK
     Route: 065
     Dates: start: 2013
  7. ETANERCEPT [Suspect]
     Active Substance: ETANERCEPT
     Dosage: 50 MG, UNK
     Route: 065
  8. ANAKINRA [Concomitant]
     Active Substance: ANAKINRA
     Dosage: UNK
  9. PREDNISONE. [Concomitant]
     Active Substance: PREDNISONE
     Dosage: 30 MILLIGRAM, QD
     Dates: start: 20130228
  10. DEXAMETHASONE. [Concomitant]
     Active Substance: DEXAMETHASONE
     Dosage: 08 MILLIGRAM, QD, 16 MILLIGRAM QD, 12 MILLIGRAM QD
     Dates: start: 2013

REACTIONS (5)
  - Latent tuberculosis [Recovered/Resolved]
  - Hydrocephalus [Recovered/Resolved]
  - Neurocysticercosis [Recovered/Resolved]
  - Off label use [Unknown]
  - Abdominal pain lower [Recovered/Resolved]

NARRATIVE: CASE EVENT DATE: 2013
